FAERS Safety Report 19275159 (Version 4)
Quarter: 2021Q3

REPORT INFORMATION
  Report Type: Report from Study
  Country: CA (occurrence: CA)
  Receive Date: 20210519
  Receipt Date: 20210907
  Transmission Date: 20211014
  Serious: Yes (Other)
  Sender: FDA-Public Use
  Company Number: CA-OTSUKA-2021_016624

PATIENT
  Age: 62 Year
  Sex: Male

DRUGS (1)
  1. CEDAZURIDINE AND DECITABINE [Suspect]
     Active Substance: CEDAZURIDINE\DECITABINE
     Indication: MYELODYSPLASTIC SYNDROME
     Dosage: (35 MG OF DECITABINE AND 100 MG OF CEDAZURIDINE)
     Route: 065
     Dates: start: 20210417

REACTIONS (8)
  - Platelet transfusion [Unknown]
  - Pyrexia [Unknown]
  - Haemoglobin decreased [Unknown]
  - Platelet count decreased [Unknown]
  - Arthralgia [Recovered/Resolved]
  - Neutrophil count decreased [Unknown]
  - Respiratory tract inflammation [Unknown]
  - Transfusion [Unknown]

NARRATIVE: CASE EVENT DATE: 20210830
